FAERS Safety Report 14040991 (Version 2)
Quarter: 2017Q4

REPORT INFORMATION
  Report Type: Spontaneous
  Country: US (occurrence: US)
  Receive Date: 20171004
  Receipt Date: 20171018
  Transmission Date: 20180321
  Serious: No
  Sender: FDA-Public Use
  Company Number: US-AMGEN-USASP2017135791

PATIENT
  Sex: Male

DRUGS (1)
  1. PROLIA [Suspect]
     Active Substance: DENOSUMAB
     Indication: PRODUCT USED FOR UNKNOWN INDICATION
     Dosage: 60 MG, UNK
     Route: 065
     Dates: start: 20160912

REACTIONS (5)
  - Tooth extraction [Unknown]
  - Dental implantation [Unknown]
  - Tooth infection [Unknown]
  - Bone graft [Unknown]
  - Bone loss [Unknown]

NARRATIVE: CASE EVENT DATE: 20170406
